FAERS Safety Report 16564361 (Version 5)
Quarter: 2021Q1

REPORT INFORMATION
  Report Type: Report from Study
  Country: US (occurrence: US)
  Receive Date: 20190712
  Receipt Date: 20210311
  Transmission Date: 20210419
  Serious: Yes (Hospitalization, Other)
  Sender: FDA-Public Use
  Company Number: US-SA-2018SA146601

PATIENT
  Age: 37 Year
  Sex: Female

DRUGS (3)
  1. PREDNISONE. [Concomitant]
     Active Substance: PREDNISONE
  2. ALEMTUZUMAB [Suspect]
     Active Substance: ALEMTUZUMAB
     Indication: MULTIPLE SCLEROSIS
     Dosage: 12 MG, QD
     Route: 041
     Dates: start: 20180522, end: 20180525
  3. ALEMTUZUMAB [Suspect]
     Active Substance: ALEMTUZUMAB
     Dosage: 12 MG, QD
     Route: 041
     Dates: start: 20180529, end: 20180529

REACTIONS (37)
  - Influenza [Recovered/Resolved]
  - Temperature intolerance [Unknown]
  - Sneezing [Not Recovered/Not Resolved]
  - Weight decreased [Not Recovered/Not Resolved]
  - Chronic disease [Unknown]
  - Muscle spasms [Not Recovered/Not Resolved]
  - Memory impairment [Not Recovered/Not Resolved]
  - Multiple sclerosis relapse [Unknown]
  - Palpitations [Not Recovered/Not Resolved]
  - Incoherent [Unknown]
  - Cough [Not Recovered/Not Resolved]
  - Inappropriate schedule of product administration [Unknown]
  - Asthma [Unknown]
  - Feeling abnormal [Unknown]
  - Aptyalism [Unknown]
  - Human papilloma virus test positive [Recovered/Resolved]
  - Skin texture abnormal [Not Recovered/Not Resolved]
  - Hypertension [Recovered/Resolved]
  - Unevaluable event [Not Recovered/Not Resolved]
  - Influenza [Recovered/Resolved]
  - Heart rate increased [Recovered/Resolved]
  - Pruritus [Not Recovered/Not Resolved]
  - Herpes zoster [Recovering/Resolving]
  - Fatigue [Not Recovered/Not Resolved]
  - Dysarthria [Not Recovered/Not Resolved]
  - Stress [Not Recovered/Not Resolved]
  - Pain [Not Recovered/Not Resolved]
  - Multiple sclerosis [Not Recovered/Not Resolved]
  - Pyrexia [Recovered/Resolved]
  - Calcinosis [Not Recovered/Not Resolved]
  - Dental caries [Not Recovered/Not Resolved]
  - Depression [Not Recovered/Not Resolved]
  - Asthenia [Not Recovered/Not Resolved]
  - Decreased immune responsiveness [Not Recovered/Not Resolved]
  - Blister [Recovering/Resolving]
  - Dyspnoea [Unknown]
  - Musculoskeletal disorder [Unknown]

NARRATIVE: CASE EVENT DATE: 201805
